FAERS Safety Report 18080104 (Version 3)
Quarter: 2020Q4

REPORT INFORMATION
  Report Type: Spontaneous
  Country: FR (occurrence: FR)
  Receive Date: 20200728
  Receipt Date: 20201230
  Transmission Date: 20210113
  Serious: Yes (Other)
  Sender: FDA-Public Use
  Company Number: FR-ROCHE-2632385

PATIENT
  Age: 61 Year
  Sex: Female
  Weight: 84 kg

DRUGS (10)
  1. ROACTEMRA [Suspect]
     Active Substance: TOCILIZUMAB
     Indication: RHEUMATOID ARTHRITIS
     Route: 042
  2. SPIRONOLACTONE. [Concomitant]
     Active Substance: SPIRONOLACTONE
     Dosage: HALF TABLET AT LUNCH TIME
  3. OMEPRAZOLE. [Concomitant]
     Active Substance: OMEPRAZOLE
     Dosage: 1 CAPSULE EVERY EVENING
  4. COAPROVEL [Concomitant]
     Active Substance: HYDROCHLOROTHIAZIDE\IRBESARTAN
     Dosage: 1 TABLET IN THE MORNING
     Dates: start: 20200709
  5. PREDNISONE. [Concomitant]
     Active Substance: PREDNISONE
     Dosage: 4 TABLETS IN THE MORNING IN JULY?3 TABLETS IN THE MORNING IN AUGUST?2 TABLETS IN THE MORNING IN SEPT
  6. VISMED [Concomitant]
     Active Substance: HYALURONATE SODIUM
     Dosage: 1 DROP IN EACH EYE 6 TO 8 TIMES A DAY IF DRY EYES
  7. ROACTEMRA [Suspect]
     Active Substance: TOCILIZUMAB
     Indication: RHEUMATOID ARTHRITIS
     Dosage: 162 MG/ 0.9 ML (BTE 4)
     Route: 058
  8. ROACTEMRA [Suspect]
     Active Substance: TOCILIZUMAB
     Route: 058
     Dates: start: 20200506
  9. OROCAL D3 [Concomitant]
     Active Substance: CALCIUM CARBONATE\CHOLECALCIFEROL
     Dosage: 1 TABLET PER DAY
  10. ACTONEL [Concomitant]
     Active Substance: RISEDRONATE SODIUM
     Dosage: 1 TABLET ON THE FIRST AND SECOND DAYS OF EACH MONTH, AT LEAST ON?09-JUL-2020. 30 MINUTES BEFORE A ME
     Dates: start: 20200709

REACTIONS (9)
  - Skin plaque [Unknown]
  - Urticaria [Not Recovered/Not Resolved]
  - Pruritus [Unknown]
  - Weight increased [Not Recovered/Not Resolved]
  - Dry skin [Unknown]
  - Haematoma [Not Recovered/Not Resolved]
  - Rash [Recovered/Resolved]
  - Swelling [Recovered/Resolved]
  - Fatigue [Recovered/Resolved]

NARRATIVE: CASE EVENT DATE: 20200506
